FAERS Safety Report 21888749 (Version 1)
Quarter: 2023Q1

REPORT INFORMATION
  Report Type: Report from Study
  Country: US (occurrence: US)
  Receive Date: 20230120
  Receipt Date: 20230120
  Transmission Date: 20230418
  Serious: Yes (Death)
  Sender: FDA-Public Use
  Company Number: US-ABBVIE-4276097

PATIENT
  Age: 53 Year
  Sex: Female

DRUGS (1)
  1. IMBRUVICA [Suspect]
     Active Substance: IBRUTINIB
     Indication: B-cell lymphoma
     Dosage: TIME INTERVAL: 0.33333333 DAYS
     Route: 048
     Dates: end: 20221228

REACTIONS (1)
  - Death [Fatal]

NARRATIVE: CASE EVENT DATE: 20221228
